FAERS Safety Report 16484033 (Version 1)
Quarter: 2019Q2

REPORT INFORMATION
  Report Type: Spontaneous
  Country: US (occurrence: US)
  Receive Date: 20190627
  Receipt Date: 20190627
  Transmission Date: 20190711
  Serious: No
  Sender: FDA-Public Use
  Company Number: US-BAYER-2019-119581

PATIENT
  Age: 76 Year
  Sex: Female

DRUGS (1)
  1. ESTRADIOL. [Suspect]
     Active Substance: ESTRADIOL
     Dosage: UNK UNK, OW
     Route: 062

REACTIONS (3)
  - Menopausal symptoms [None]
  - Hot flush [None]
  - Drug ineffective [None]
